FAERS Safety Report 7442328-7 (Version None)
Quarter: 2011Q2

REPORT INFORMATION
  Report Type: 
  Country: None (occurrence: None)
  Receive Date: 20110428
  Receipt Date: 20110422
  Transmission Date: 20111010
  Serious: Yes (Death)
  Sender: FDA-Public Use
  Company Number: JP-SANOFI-AVENTIS-2011SA021180

PATIENT
  Age: 81 Year
  Sex: Male
  Weight: 60 kg

DRUGS (7)
  1. DECADRON [Concomitant]
     Indication: PREMEDICATION
     Route: 048
     Dates: start: 20100720, end: 20110302
  2. SELBEX [Concomitant]
     Indication: PREMEDICATION
     Route: 048
     Dates: start: 20091127, end: 20110302
  3. TAXOTERE [Suspect]
     Indication: PROSTATE CANCER
     Dosage: EVERY 4 WEEKS
     Route: 041
     Dates: start: 20101014, end: 20110221
  4. ZOLADEX [Concomitant]
     Indication: PROSTATE CANCER
     Dates: start: 20091211, end: 20101111
  5. GASTER [Concomitant]
     Indication: PREMEDICATION
     Route: 048
     Dates: start: 20091127, end: 20110302
  6. ALL OTHER THERAPEUTIC PRODUCTS [Concomitant]
     Indication: PREMEDICATION
     Route: 048
     Dates: start: 20091127, end: 20110302
  7. UFT [Concomitant]
     Indication: PROSTATE CANCER
     Route: 048
     Dates: start: 20091127, end: 20110302

REACTIONS (1)
  - INTERSTITIAL LUNG DISEASE [None]
